FAERS Safety Report 4462337-X (Version None)
Quarter: 2004Q3

REPORT INFORMATION
  Report Type: 
  Country: None (occurrence: None)
  Receive Date: 20040924
  Receipt Date: 20040915
  Transmission Date: 20050211
  Serious: Yes (Other)
  Sender: FDA-Public Use
  Company Number: 2004-05-1244

PATIENT
  Age: 67 Year
  Sex: Female
  Weight: 68.0396 kg

DRUGS (2)
  1. ALBUTEROL [Suspect]
     Indication: ASTHMA
     Dosage: 2 PFS QID PRN ORAL AER I
     Route: 055
     Dates: start: 20040101
  2. ALBUTEROL [Suspect]
     Indication: EMPHYSEMA
     Dosage: 2 PFS QID PRN ORAL AER I
     Route: 055
     Dates: start: 20040101

REACTIONS (2)
  - PHARMACEUTICAL PRODUCT COMPLAINT [None]
  - TOOTH INJURY [None]
